FAERS Safety Report 9404948 (Version 1)
Quarter: 2013Q3

REPORT INFORMATION
  Report Type: Spontaneous
  Country: US (occurrence: US)
  Receive Date: 20130717
  Receipt Date: 20130717
  Transmission Date: 20140515
  Serious: Yes (Death)
  Sender: FDA-Public Use
  Company Number: US-BRISTOL-MYERS SQUIBB COMPANY-18708115

PATIENT
  Age: 61 Year
  Sex: Female
  Weight: 63.49 kg

DRUGS (6)
  1. YERVOY [Suspect]
  2. PREVALITE [Concomitant]
  3. COMPAZINE [Concomitant]
     Indication: NAUSEA
     Dosage: CAPS
  4. ALDACTONE [Concomitant]
     Dosage: TABS
  5. ARIXTRA [Concomitant]
  6. MORPHINE [Concomitant]

REACTIONS (1)
  - Malignant neoplasm progression [Fatal]
